FAERS Safety Report 7314284-3 (Version None)
Quarter: 2011Q1

REPORT INFORMATION
  Report Type: 
  Country: None (occurrence: None)
  Receive Date: 20110225
  Receipt Date: 20100708
  Transmission Date: 20110831
  Serious: Yes (Hospitalization)
  Sender: FDA-Public Use
  Company Number: US-MYLANLABS-2010S1012150

PATIENT
  Age: 25 Year
  Sex: Female
  Weight: 170.1 kg

DRUGS (2)
  1. AMNESTEEM [Suspect]
     Indication: HIDRADENITIS
     Route: 048
     Dates: start: 20100416, end: 20100628
  2. OCELLA [Suspect]
     Indication: ORAL CONTRACEPTION
     Route: 048
     Dates: end: 20100628

REACTIONS (1)
  - PERIPHERAL EMBOLISM [None]
